FAERS Safety Report 6453931-5 (Version None)
Quarter: 2009Q4

REPORT INFORMATION
  Report Type: 
  Country: None (occurrence: None)
  Receive Date: 20091117
  Receipt Date: 20091029
  Transmission Date: 20100525
  Serious: Yes (Hospitalization)
  Sender: FDA-Public Use
  Company Number: AMAG200900040

PATIENT
  Age: 81 Year
  Sex: Female
  Weight: 99.8 kg

DRUGS (13)
  1. FERAHEME [Suspect]
     Indication: IRON DEFICIENCY ANAEMIA
     Dosage: 510 MG, SINGLE, INTRAVENOUS
     Route: 042
     Dates: start: 20091023, end: 20091023
  2. FERAHEME [Suspect]
     Indication: RENAL FAILURE CHRONIC
     Dosage: 510 MG, SINGLE, INTRAVENOUS
     Route: 042
     Dates: start: 20091023, end: 20091023
  3. NEXIUM [Concomitant]
  4. FLEXERIL [Concomitant]
  5. PREDNISONE TAB [Concomitant]
  6. LEVOTHYROXINE SODIUM [Concomitant]
  7. FISH OIL (FISH OIL) [Concomitant]
  8. CLONIDINE [Concomitant]
  9. IRON (IRON) [Concomitant]
  10. HYDRALAZINE HCL [Concomitant]
  11. LASIX [Concomitant]
  12. HECTOROL (DOXERALCIFEROL) [Concomitant]
  13. NOVOLIN 70/30 [Concomitant]

REACTIONS (2)
  - PYREXIA [None]
  - SPINAL COLUMN STENOSIS [None]
